FAERS Safety Report 5963291-1 (Version None)
Quarter: 2008Q4

REPORT INFORMATION
  Report Type: 
  Country: None (occurrence: None)
  Receive Date: 20081121
  Receipt Date: 20081121
  Transmission Date: 20090506
  Serious: Yes (Disabling)
  Sender: FDA-Public Use
  Company Number: None

PATIENT
  Age: 29 Year
  Sex: Male
  Weight: 90.7194 kg

DRUGS (2)
  1. FENTANYL-100 [Suspect]
  2. OXYCONTIN [Concomitant]

REACTIONS (16)
  - AGGRESSION [None]
  - ASTHENIA [None]
  - BACK PAIN [None]
  - CARDIAC DISORDER [None]
  - DEPRESSION [None]
  - DISCOMFORT [None]
  - DRUG TOLERANCE INCREASED [None]
  - EMOTIONAL DISTRESS [None]
  - FEAR [None]
  - FEAR OF DEATH [None]
  - GASTROINTESTINAL DISORDER [None]
  - IMPRISONMENT [None]
  - INADEQUATE ANALGESIA [None]
  - PAIN [None]
  - PSYCHIATRIC SYMPTOM [None]
  - SUICIDAL IDEATION [None]
